FAERS Safety Report 11384963 (Version 1)
Quarter: 2015Q3

REPORT INFORMATION
  Report Type: Spontaneous
  Country: US (occurrence: US)
  Receive Date: 20150811
  Receipt Date: 20150811
  Transmission Date: 20151125
  Serious: No
  Sender: FDA-Public Use
  Company Number: US-ELI_LILLY_AND_COMPANY-US201106000677

PATIENT
  Age: 49 Year
  Sex: Male

DRUGS (1)
  1. CIALIS [Suspect]
     Active Substance: TADALAFIL
     Dosage: 20 MG, PRN
     Dates: start: 2009

REACTIONS (7)
  - Headache [Unknown]
  - Nasal congestion [Unknown]
  - Muscle spasms [Unknown]
  - Myalgia [Unknown]
  - Counterfeit drug administered [Recovered/Resolved]
  - Back pain [Unknown]
  - Off label use [Not Recovered/Not Resolved]

NARRATIVE: CASE EVENT DATE: 201105
